FAERS Safety Report 11758824 (Version 1)
Quarter: 2015Q4

REPORT INFORMATION
  Report Type: Spontaneous
  Country: US (occurrence: None)
  Receive Date: 20151119
  Receipt Date: 20151119
  Transmission Date: 20160304
  Serious: Yes (Life-Threatening, Hospitalization)
  Sender: FDA-Public Use
  Company Number: None

PATIENT
  Age: 67 Year
  Sex: Female
  Weight: 68.04 kg

DRUGS (1)
  1. PERJETA [Suspect]
     Active Substance: PERTUZUMAB
     Indication: CHEMOTHERAPY

REACTIONS (6)
  - Vein disorder [None]
  - Tongue disorder [None]
  - Loss of consciousness [None]
  - Fall [None]
  - Dysphonia [None]
  - Tremor [None]

NARRATIVE: CASE EVENT DATE: 20151107
